FAERS Safety Report 20406507 (Version 2)
Quarter: 2024Q3

REPORT INFORMATION
  Report Type: Spontaneous
  Country: US (occurrence: US)
  Receive Date: 20220131
  Receipt Date: 20240807
  Transmission Date: 20241016
  Serious: No
  Sender: SANOFI AVENTIS
  Company Number: US-SA-SAC20220127000275

PATIENT
  Age: 46 Year
  Sex: Female

DRUGS (16)
  1. DUPIXENT [Suspect]
     Active Substance: DUPILUMAB
     Indication: Dermatitis atopic
     Dosage: 600 MG, 1X
     Route: 058
  2. DUPIXENT [Suspect]
     Active Substance: DUPILUMAB
     Dosage: 300 MG, QOW
     Route: 058
     Dates: start: 20220121
  3. AZITHROMYCIN [Concomitant]
     Active Substance: AZITHROMYCIN
     Dosage: UNK
  4. ADVAIR HFA [Concomitant]
     Active Substance: FLUTICASONE PROPIONATE\SALMETEROL XINAFOATE
     Dosage: UNK
  5. ALBUTEROL SULFATE [Concomitant]
     Active Substance: ALBUTEROL SULFATE
     Dosage: UNK
  6. CICLOPIROX [Concomitant]
     Active Substance: CICLOPIROX
     Dosage: UNK
  7. ELIQUIS [Concomitant]
     Active Substance: APIXABAN
     Dosage: UNK
  8. FLUTICASONE [Concomitant]
     Active Substance: FLUTICASONE
     Dosage: UNK
  9. LOSARTAN POTASSIUM [Concomitant]
     Active Substance: LOSARTAN POTASSIUM
     Dosage: UNK
  10. LOTEPREDNOL [Concomitant]
     Active Substance: LOTEPREDNOL
     Dosage: UNK
  11. METHOTREXATE [Concomitant]
     Active Substance: METHOTREXATE
     Dosage: UNK
  12. METOPROLOL SUCCINATE [Concomitant]
     Active Substance: METOPROLOL SUCCINATE
     Dosage: UNK
  13. PHENTERMINE [Concomitant]
     Active Substance: PHENTERMINE
     Dosage: UNK
  14. PREDNISONE [Concomitant]
     Active Substance: PREDNISONE
     Dosage: UNK
  15. LEVOTHYROXINE [Concomitant]
     Active Substance: LEVOTHYROXINE\LEVOTHYROXINE SODIUM
     Dosage: UNK
  16. METOPROLOL [Concomitant]
     Active Substance: METOPROLOL
     Dosage: UNK

REACTIONS (4)
  - Sleep disorder due to a general medical condition [Unknown]
  - Discomfort [Unknown]
  - Rash [Unknown]
  - Drug ineffective [Unknown]
